FAERS Safety Report 16072827 (Version 1)
Quarter: 2019Q1

REPORT INFORMATION
  Report Type: Spontaneous
  Country: US (occurrence: US)
  Receive Date: 20190314
  Receipt Date: 20190314
  Transmission Date: 20190418
  Serious: No
  Sender: FDA-Public Use
  Company Number: US-GUERBET-US-20180222

PATIENT
  Age: 54 Year
  Sex: Female

DRUGS (1)
  1. OPTIRAY 300 [Suspect]
     Active Substance: IOVERSOL
     Indication: PRODUCT USED FOR UNKNOWN INDICATION
     Route: 042
     Dates: start: 20180820, end: 20180820

REACTIONS (3)
  - Throat irritation [Recovered/Resolved]
  - Cough [Recovered/Resolved]
  - Sneezing [Recovered/Resolved]

NARRATIVE: CASE EVENT DATE: 20180820
